FAERS Safety Report 25885736 (Version 1)
Quarter: 2025Q4

REPORT INFORMATION
  Report Type: Report from Study
  Country: CA (occurrence: CA)
  Receive Date: 20251006
  Receipt Date: 20251006
  Transmission Date: 20260117
  Serious: Yes (Other)
  Sender: PFIZER
  Company Number: CA-PFIZER INC-202500196127

PATIENT
  Age: 31 Year
  Sex: Female

DRUGS (1)
  1. ADALIMUMAB [Suspect]
     Active Substance: ADALIMUMAB
     Indication: Uveitis
     Dosage: 40 MG 1 EVERY 2 WEEKS

REACTIONS (2)
  - Lupus-like syndrome [Not Recovered/Not Resolved]
  - Pain [Not Recovered/Not Resolved]
